FAERS Safety Report 15901858 (Version 5)
Quarter: 2019Q3

REPORT INFORMATION
  Report Type: Report from Study
  Country: JP (occurrence: JP)
  Receive Date: 20190201
  Receipt Date: 20190912
  Transmission Date: 20191004
  Serious: Yes (Life-Threatening, Hospitalization, Other)
  Sender: FDA-Public Use
  Company Number: JP-PFIZER INC-2019041938

PATIENT
  Age: 40 Year
  Sex: Male
  Weight: 51.3 kg

DRUGS (12)
  1. PENTASA [Suspect]
     Active Substance: MESALAMINE
     Indication: COLITIS ULCERATIVE
     Dosage: 1 G, 1X/DAY
     Route: 054
     Dates: start: 20180905, end: 20190104
  2. LIALDA [Concomitant]
     Active Substance: MESALAMINE
     Indication: COLITIS ULCERATIVE
     Dosage: 2400 MG, 1X/DAY
     Route: 048
     Dates: start: 20181017, end: 20190104
  3. LAC-B [Concomitant]
     Active Substance: BIFIDOBACTERIUM SPP.
     Indication: COLITIS ULCERATIVE
     Dosage: UNK
     Route: 048
     Dates: start: 20170419
  4. BIO-THREE [Concomitant]
     Active Substance: HERBALS
     Indication: COLITIS ULCERATIVE
     Dosage: UNK
     Route: 048
     Dates: start: 20170419
  5. ZINC. [Concomitant]
     Active Substance: ZINC
     Indication: ZINC DEFICIENCY
     Dosage: UNK
     Route: 048
     Dates: start: 20181226
  6. URIADEC [Concomitant]
     Active Substance: TOPIROXOSTAT
     Dosage: 60 MG, 2X/DAY
     Route: 048
     Dates: start: 20181212
  7. XELJANZ [Suspect]
     Active Substance: TOFACITINIB CITRATE
     Indication: COLITIS ULCERATIVE
     Dosage: 10 MG, 2X/DAY
     Route: 048
     Dates: start: 20181226, end: 20190104
  8. URIADEC [Concomitant]
     Active Substance: TOPIROXOSTAT
     Dosage: 40 MG, 2X/DAY
     Route: 048
     Dates: start: 20181114, end: 20181212
  9. PREDNISOLONE. [Suspect]
     Active Substance: PREDNISOLONE
     Indication: DERMATITIS
     Dosage: 40 MG, 1X/DAY
     Route: 048
     Dates: start: 20160810, end: 20190104
  10. MAINTATE [Suspect]
     Active Substance: BISOPROLOL FUMARATE
     Indication: HYPERTENSION
     Dosage: 5 MG, 1X/DAY
     Route: 048
     Dates: start: 20181212, end: 20190514
  11. IMURAN [Concomitant]
     Active Substance: AZATHIOPRINE
     Indication: COLITIS ULCERATIVE
     Dosage: 50 MG, 2X/DAY
     Route: 048
     Dates: start: 20160810, end: 20190104
  12. URIADEC [Concomitant]
     Active Substance: TOPIROXOSTAT
     Indication: HYPERURICAEMIA
     Dosage: 20 MG, 2X/DAY
     Route: 048
     Dates: start: 20181017

REACTIONS (2)
  - Peritonitis [Recovered/Resolved with Sequelae]
  - Rectal perforation [Recovered/Resolved]

NARRATIVE: CASE EVENT DATE: 20190104
